FAERS Safety Report 5737565-3 (Version None)
Quarter: 2008Q2

REPORT INFORMATION
  Report Type: 
  Country: None (occurrence: None)
  Receive Date: 20080514
  Receipt Date: 20080509
  Transmission Date: 20081010
  Serious: Yes (Hospitalization)
  Sender: FDA-Public Use
  Company Number: PHHY2008CH07450

PATIENT
  Age: 49 Year
  Sex: Female

DRUGS (6)
  1. MS CONTIN [Concomitant]
     Dosage: 160 MG/DAY
     Dates: start: 19980901
  2. SIRDALUD [Concomitant]
     Dosage: 24 MG/DAY
     Dates: start: 19980601
  3. LANSOPRAZOLE [Concomitant]
     Dosage: 30 MG/DAY
     Dates: start: 19980301
  4. DEPAKENE [Concomitant]
     Dosage: 500 MG/DAY
     Dates: start: 19980901
  5. MAGNESIUM [Concomitant]
     Dosage: 400 MG/DAY
     Dates: start: 19980901
  6. TEGRETOL [Suspect]
     Dosage: 1200 MG/DAY
     Dates: start: 20000502, end: 20070723

REACTIONS (7)
  - ALVEOLITIS ALLERGIC [None]
  - BRONCHIOLITIS [None]
  - COMPUTERISED TOMOGRAM ABNORMAL [None]
  - COUGH [None]
  - CRYPTOGENIC ORGANISING PNEUMONIA [None]
  - PRODUCTIVE COUGH [None]
  - PYREXIA [None]
